FAERS Safety Report 5046310-9 (Version None)
Quarter: 2006Q2

REPORT INFORMATION
  Report Type: 
  Country: None (occurrence: None)
  Receive Date: 20060601
  Receipt Date: 20060214
  Transmission Date: 20061013
  Serious: No
  Sender: FDA-Public Use
  Company Number: 2006PV008700

PATIENT
  Age: 60 Year
  Sex: Male
  Weight: 104.3273 kg

DRUGS (14)
  1. BYETTA [Suspect]
     Indication: DIABETES MELLITUS NON-INSULIN-DEPENDENT
     Dosage: SEE IMAGE
     Route: 058
     Dates: start: 20060101, end: 20060201
  2. BYETTA [Suspect]
     Indication: DIABETES MELLITUS NON-INSULIN-DEPENDENT
     Dosage: SEE IMAGE
     Route: 058
     Dates: start: 20060202
  3. GLIPIZIDE [Concomitant]
  4. ATENOLOL [Concomitant]
  5. PREVACID [Concomitant]
  6. FLUOXETINE [Concomitant]
  7. LIMBREL [Concomitant]
  8. QUINAPRIL [Concomitant]
  9. ISOSORBIDE MONONITRATE [Concomitant]
  10. ADVAIR DISKUS 100/50 [Concomitant]
  11. COENZYME Q10 [Concomitant]
  12. MULTIVITAMIN [Concomitant]
  13. GLUCOSAMINE [Concomitant]
  14. TYLENOL [Concomitant]

REACTIONS (4)
  - BLOOD GLUCOSE DECREASED [None]
  - BLOOD GLUCOSE INCREASED [None]
  - NASOPHARYNGITIS [None]
  - WEIGHT DECREASED [None]
